FAERS Safety Report 16096475 (Version 1)
Quarter: 2019Q1

REPORT INFORMATION
  Report Type: Spontaneous
  Country: US (occurrence: US)
  Receive Date: 20190320
  Receipt Date: 20190320
  Transmission Date: 20190418
  Serious: Yes (Other)
  Sender: FDA-Public Use
  Company Number: US-ALLERGAN-1910893US

PATIENT
  Sex: Female

DRUGS (1)
  1. LILETTA [Suspect]
     Active Substance: LEVONORGESTREL
     Indication: MENSTRUAL DISORDER
     Dosage: 52 MG, SINGLE
     Route: 015
     Dates: start: 201602, end: 20181004

REACTIONS (9)
  - Ovarian cyst ruptured [Recovered/Resolved]
  - Amenorrhoea [Unknown]
  - Uterine scar [Recovered/Resolved]
  - Off label use [Unknown]
  - Procedural pain [Recovered/Resolved]
  - Pelvic pain [Recovered/Resolved]
  - Dyspareunia [Recovered/Resolved]
  - Depression [Recovered/Resolved]
  - Complication of device removal [Recovered/Resolved]

NARRATIVE: CASE EVENT DATE: 2016
